FAERS Safety Report 6403906-7 (Version None)
Quarter: 2009Q4

REPORT INFORMATION
  Report Type: 
  Country: None (occurrence: None)
  Receive Date: 20091015
  Receipt Date: 20091015
  Transmission Date: 20100525
  Serious: Yes (Other)
  Sender: FDA-Public Use
  Company Number: None

PATIENT
  Sex: Female
  Weight: 81.6475 kg

DRUGS (1)
  1. CREST PRO HEALTH NIGHT 0.07% CETYLPYRIDINIUM [Suspect]
     Indication: DENTAL DISORDER PROPHYLAXIS
     Dosage: 4 T 1X NIGHT

REACTIONS (5)
  - AGEUSIA [None]
  - DYSGEUSIA [None]
  - GINGIVAL ULCERATION [None]
  - ORAL DISCOMFORT [None]
  - POISONING [None]
